FAERS Safety Report 6479264 (Version 3)
Quarter: 2013Q2

REPORT INFORMATION
  Report Type: Spontaneous
  Country: FR (occurrence: FR)
  Receive Date: 20071203
  Receipt Date: 20130423
  Transmission Date: 20140414
  Serious: Yes (Disabling, Other)
  Sender: FDA-Public Use
  Company Number: FR-ELI_LILLY_AND_COMPANY-FR200711005833

PATIENT
  Sex: Male
  Weight: 125 kg

DRUGS (1)
  1. ZYPREXA [Suspect]
     Indication: AUTISM
     Dosage: 1 DF, UNKNOWN
     Route: 048
     Dates: start: 2000

REACTIONS (18)
  - Blindness unilateral [Unknown]
  - Weight increased [Unknown]
  - Obesity [Unknown]
  - Diabetes mellitus [Unknown]
  - Dysuria [Unknown]
  - Skin disorder [Unknown]
  - Heart rate increased [Unknown]
  - Panic attack [Unknown]
  - Anxiety [Unknown]
  - Initial insomnia [Unknown]
  - Somnolence [Unknown]
  - Aggression [Unknown]
  - Headache [Unknown]
  - Dry mouth [Unknown]
  - Thirst [Unknown]
  - Hyperphagia [Unknown]
  - Benign prostatic hyperplasia [Unknown]
  - Off label use [Unknown]
